FAERS Safety Report 5087148-6 (Version None)
Quarter: 2006Q3

REPORT INFORMATION
  Report Type: 
  Country: None (occurrence: None)
  Receive Date: 20060821
  Receipt Date: 20060804
  Transmission Date: 20061208
  Serious: Yes (Hospitalization, Other)
  Sender: FDA-Public Use
  Company Number: DE-2005-026414

PATIENT
  Age: 33 Year
  Sex: Female
  Weight: 93 kg

DRUGS (2)
  1. BETAFERON (INTERFERON BETA - 1B)INJECTION, 250?G [Suspect]
     Indication: RELAPSING-REMITTING MULTIPLE SCLEROSIS
     Dosage: 1 AMP, EVERY 2D, SUBCUTANEOUS
     Route: 058
     Dates: start: 20030107
  2. COPAXONE [Concomitant]

REACTIONS (11)
  - ACUTE CORONARY SYNDROME [None]
  - ANGINA PECTORIS [None]
  - ASTHENIA [None]
  - CARDIOMYOPATHY [None]
  - DYSPNOEA [None]
  - MENTAL IMPAIRMENT [None]
  - MULTIPLE SCLEROSIS RELAPSE [None]
  - MYALGIA [None]
  - OEDEMA PERIPHERAL [None]
  - SUFFOCATION FEELING [None]
  - VENTRICULAR DYSFUNCTION [None]
